FAERS Safety Report 5359028-X (Version None)
Quarter: 2007Q2

REPORT INFORMATION
  Report Type: 
  Country: None (occurrence: None)
  Receive Date: 20070615
  Receipt Date: 20070606
  Transmission Date: 20071010
  Serious: Yes (Hospitalization)
  Sender: FDA-Public Use
  Company Number: DE-PURDUE-DEU_2007_0003311

PATIENT
  Age: 62 Year
  Sex: Female

DRUGS (20)
  1. OXYCODONE HYDROCHLORIDE CR TABLETS [Suspect]
     Indication: BACK PAIN
     Dosage: 40 MG, DAILY
     Route: 048
     Dates: start: 20070316, end: 20070316
  2. OXYCODONE HYDROCHLORIDE CR TABLETS [Suspect]
     Dosage: 80 MG, DAILY
     Route: 048
     Dates: start: 20070317, end: 20070409
  3. OXYCODONE HYDROCHLORIDE CR TABLETS [Suspect]
     Dosage: 40 MG, DAILY
     Route: 048
     Dates: start: 20070410, end: 20070410
  4. PANTOPRAZOLE SODIUM [Suspect]
  5. CITALOPRAM HYDROBROMIDE [Suspect]
  6. RAMIPRIL [Suspect]
  7. CORVATON ^HOECHST^ [Suspect]
  8. ZOCOR [Suspect]
  9. ACETYLSALICYLIC ACID SRT [Suspect]
  10. BISOPROLOL FUMARATE [Suspect]
  11. ISOPHANE INSULIN [Suspect]
  12. INSULIN HUMAN [Suspect]
  13. INSULIN ASPART [Suspect]
  14. METAMIZOLE [Suspect]
  15. METOCLOPRAMIDE [Suspect]
  16. PREGABALINE [Suspect]
  17. TROSPIUM CHLORIDE [Suspect]
  18. BISACODYL [Suspect]
  19. LAXOBERAL ^BOEHRINGER INGELHEIM^ [Suspect]
  20. LIDOCAINE [Suspect]

REACTIONS (1)
  - PANCREATITIS [None]
